FAERS Safety Report 7606232-3 (Version None)
Quarter: 2011Q3

REPORT INFORMATION
  Report Type: 
  Country: None (occurrence: None)
  Receive Date: 20110705
  Receipt Date: 20110620
  Transmission Date: 20111222
  Serious: Yes (Hospitalization, Other)
  Sender: FDA-Public Use
  Company Number: 2011MA007774

PATIENT
  Age: 56 Year
  Sex: Female

DRUGS (1)
  1. IBUPROFEN [Suspect]
     Indication: OVERDOSE
     Dosage: 40000 MG, 1X,

REACTIONS (8)
  - INTENTIONAL OVERDOSE [None]
  - BODY TEMPERATURE DECREASED [None]
  - ACUTE MYOCARDIAL INFARCTION [None]
  - ALCOHOL USE [None]
  - SINUS TACHYCARDIA [None]
  - BLOOD PRESSURE DECREASED [None]
  - LETHARGY [None]
  - RESPIRATORY RATE DECREASED [None]
